FAERS Safety Report 8518844-3 (Version None)
Quarter: 2012Q3

REPORT INFORMATION
  Report Type: 
  Country: None (occurrence: None)
  Receive Date: 20120718
  Receipt Date: 20120716
  Transmission Date: 20120928
  Serious: Yes (Death, Hospitalization)
  Sender: FDA-Public Use
  Company Number: PHHY2012CA025128

PATIENT
  Sex: Male
  Weight: 54 kg

DRUGS (2)
  1. SANDOSTATIN LAR [Suspect]
     Indication: SMALL INTESTINE CARCINOMA
     Dosage: 40MG EVERY 3 WEEKS
     Route: 030
     Dates: start: 20090302
  2. AFINITOR [Suspect]
     Indication: SMALL INTESTINE CARCINOMA
     Dosage: 5 MG, QD
     Route: 048
     Dates: start: 20110804, end: 20111202

REACTIONS (7)
  - WEIGHT INCREASED [None]
  - BLOOD CREATININE INCREASED [None]
  - UNDERDOSE [None]
  - MALAISE [None]
  - FATIGUE [None]
  - DEATH [None]
  - PAIN [None]
